FAERS Safety Report 6913365-3 (Version None)
Quarter: 2010Q3

REPORT INFORMATION
  Report Type: 
  Country: None (occurrence: None)
  Receive Date: 20100809
  Receipt Date: 20100730
  Transmission Date: 20110219
  Serious: Yes (Death)
  Sender: FDA-Public Use
  Company Number: US-TYCO HEALTHCARE/MALLINCKRODT-T201001740

PATIENT
  Sex: Male

DRUGS (2)
  1. OPTIMARK [Suspect]
     Indication: NUCLEAR MAGNETIC RESONANCE IMAGING
     Dosage: UNK
     Dates: start: 20040721, end: 20040721
  2. OPTIMARK [Suspect]
     Dosage: UNK
     Dates: start: 20050214, end: 20050214

REACTIONS (1)
  - NEPHROGENIC SYSTEMIC FIBROSIS [None]
